FAERS Safety Report 18259711 (Version 1)
Quarter: 2020Q3

REPORT INFORMATION
  Report Type: Spontaneous
  Country: US (occurrence: US)
  Receive Date: 20200912
  Receipt Date: 20200912
  Transmission Date: 20201103
  Serious: No
  Sender: FDA-Public Use
  Company Number: US-ELI_LILLY_AND_COMPANY-US202009005311

PATIENT
  Sex: Male

DRUGS (3)
  1. HUMULIN 70/30 [Suspect]
     Active Substance: INSULIN HUMAN
     Dosage: 25 U, BID
     Route: 058
  2. HUMULIN 70/30 [Suspect]
     Active Substance: INSULIN HUMAN
     Indication: TYPE 2 DIABETES MELLITUS
     Dosage: 25 U, BID
     Route: 058
     Dates: start: 2013
  3. GLYXAMBI [Concomitant]
     Active Substance: EMPAGLIFLOZIN\LINAGLIPTIN
     Indication: TYPE 2 DIABETES MELLITUS
     Dosage: 25 MG, DAILY

REACTIONS (1)
  - Glycosylated haemoglobin increased [Not Recovered/Not Resolved]
